FAERS Safety Report 25415612 (Version 1)
Quarter: 2025Q2

REPORT INFORMATION
  Report Type: Spontaneous
  Country: SE (occurrence: SE)
  Receive Date: 20250610
  Receipt Date: 20250610
  Transmission Date: 20250716
  Serious: Yes (Life-Threatening, Hospitalization, Disabling)
  Sender: TEVA
  Company Number: None

PATIENT
  Age: 39 Year
  Sex: Female
  Weight: 69 kg

DRUGS (1)
  1. MIRTAZAPINE [Suspect]
     Active Substance: MIRTAZAPINE
     Indication: Fatigue
     Dosage: 1 TABLET 15 MG, ONCE DAILY, MIRTAZAPINE ACTAVIS
     Route: 065
     Dates: start: 20241015

REACTIONS (19)
  - Coordination abnormal [Recovering/Resolving]
  - Diarrhoea [Recovered/Resolved]
  - Visual impairment [Recovering/Resolving]
  - Fatigue [Recovering/Resolving]
  - Genital hypoaesthesia [Recovering/Resolving]
  - Tinnitus [Not Recovered/Not Resolved]
  - Akathisia [Recovering/Resolving]
  - Dizziness [Recovering/Resolving]
  - Unevaluable event [Recovered/Resolved]
  - Hyperhidrosis [Recovering/Resolving]
  - Blood glucose decreased [Recovering/Resolving]
  - Presyncope [Recovering/Resolving]
  - Weight increased [Not Recovered/Not Resolved]
  - Derealisation [Recovering/Resolving]
  - Galactorrhoea [Recovering/Resolving]
  - Malaise [Recovering/Resolving]
  - Gait disturbance [Recovering/Resolving]
  - Nightmare [Recovering/Resolving]
  - Sleep paralysis [Recovering/Resolving]

NARRATIVE: CASE EVENT DATE: 20241023
